FAERS Safety Report 7519653-4 (Version None)
Quarter: 2011Q2

REPORT INFORMATION
  Report Type: 
  Country: None (occurrence: None)
  Receive Date: 20110602
  Receipt Date: 20110512
  Transmission Date: 20111010
  Serious: Yes (Hospitalization)
  Sender: FDA-Public Use
  Company Number: B0719908A

PATIENT

DRUGS (1)
  1. MALARONE [Suspect]

REACTIONS (4)
  - HYPERGLYCAEMIA [None]
  - COMA [None]
  - ANAPHYLACTIC SHOCK [None]
  - HYPERSENSITIVITY [None]
